FAERS Safety Report 7859962-2 (Version None)
Quarter: 2011Q4

REPORT INFORMATION
  Report Type: 
  Country: None (occurrence: None)
  Receive Date: 20111026
  Receipt Date: 20111026
  Transmission Date: 20120403
  Serious: Yes (Hospitalization)
  Sender: FDA-Public Use
  Company Number: None

PATIENT
  Sex: Male
  Weight: 114.76 kg

DRUGS (2)
  1. ADCIRCA [Suspect]
     Indication: PULMONARY ARTERIAL HYPERTENSION
     Dosage: 40MG DAILY ORAL
     Route: 048
     Dates: start: 20110223
  2. ADCIRCA [Suspect]
     Indication: CARDIAC DISORDER
     Dosage: 40MG DAILY ORAL
     Route: 048
     Dates: start: 20110223

REACTIONS (1)
  - CARDIAC FAILURE CONGESTIVE [None]
